FAERS Safety Report 11203000 (Version 1)
Quarter: 2015Q2

REPORT INFORMATION
  Report Type: Report from Study
  Country: BG (occurrence: BG)
  Receive Date: 20150619
  Receipt Date: 20150619
  Transmission Date: 20150821
  Serious: Yes (Hospitalization)
  Sender: FDA-Public Use
  Company Number: BG-GLAXOSMITHKLINE-BG2015084905

PATIENT
  Age: 59 Year
  Sex: Female

DRUGS (6)
  1. EXEMESTANE. [Suspect]
     Active Substance: EXEMESTANE
     Indication: BREAST CANCER METASTATIC
     Dosage: 25 MG, QD
     Route: 048
     Dates: start: 20141008
  2. TRASTUZUMAB [Suspect]
     Active Substance: TRASTUZUMAB
     Indication: BREAST CANCER METASTATIC
     Dosage: 6 MG/KG, Q3D
     Route: 042
     Dates: start: 20141008
  3. KVAMATEL [Concomitant]
     Indication: ANAEMIA
     Route: 048
     Dates: start: 20150603, end: 20150604
  4. DEXAMETASONE [Concomitant]
     Active Substance: DEXAMETHASONE
     Indication: ANAEMIA
     Dosage: UNK, QD
     Route: 042
     Dates: start: 20150603, end: 20150604
  5. ERYTHROCYTE CONCENTRATE [Concomitant]
     Active Substance: HUMAN RED BLOOD CELL
     Indication: ANAEMIA
     Dosage: UNK, QD
     Route: 042
     Dates: start: 20150603, end: 20150604
  6. TYKERB [Suspect]
     Active Substance: LAPATINIB DITOSYLATE
     Indication: BREAST CANCER METASTATIC
     Dosage: 1000 MG, DAILY
     Route: 048
     Dates: start: 20141008

REACTIONS (1)
  - Anaemia [Not Recovered/Not Resolved]

NARRATIVE: CASE EVENT DATE: 20150519
